FAERS Safety Report 5600122-3 (Version None)
Quarter: 2008Q1

REPORT INFORMATION
  Report Type: 
  Country: None (occurrence: None)
  Receive Date: 20080123
  Receipt Date: 20080122
  Transmission Date: 20080703
  Serious: Yes (Hospitalization)
  Sender: FDA-Public Use
  Company Number: B0503553A

PATIENT
  Age: 10 Year
  Sex: Female
  Weight: 33 kg

DRUGS (4)
  1. CLAMOXYL [Suspect]
     Indication: TOOTH EXTRACTION
     Dosage: 500MG THREE TIMES PER DAY
     Route: 048
     Dates: start: 20071012, end: 20071020
  2. APRANAX [Suspect]
     Indication: TOOTH EXTRACTION
     Dosage: 275MG TWICE PER DAY
     Route: 048
     Dates: start: 20071012, end: 20071016
  3. CHLORHEXIDINE GLUCONATE [Concomitant]
     Indication: TOOTH EXTRACTION
     Route: 002
  4. DOLIPRANE [Concomitant]
     Indication: TOOTH EXTRACTION
     Route: 065

REACTIONS (7)
  - ABDOMINAL PAIN UPPER [None]
  - BACK PAIN [None]
  - BLOOD CREATININE INCREASED [None]
  - MICROALBUMINURIA [None]
  - NEPHRITIS INTERSTITIAL [None]
  - RENAL DISORDER [None]
  - RENAL FAILURE ACUTE [None]
